FAERS Safety Report 7800853-0 (Version None)
Quarter: 2011Q4

REPORT INFORMATION
  Report Type: 
  Country: None (occurrence: None)
  Receive Date: 20111006
  Receipt Date: 20110928
  Transmission Date: 20120403
  Serious: Yes (Other)
  Sender: FDA-Public Use
  Company Number: US-GILEAD-2011-0044506

PATIENT

DRUGS (1)
  1. AMBRISENTAN [Suspect]

REACTIONS (1)
  - EPISTAXIS [None]
